FAERS Safety Report 10524761 (Version 3)
Quarter: 2014Q4

REPORT INFORMATION
  Report Type: Report from Study
  Country: KR (occurrence: KR)
  Receive Date: 20141017
  Receipt Date: 20141120
  Transmission Date: 20150528
  Serious: Yes (Death)
  Sender: FDA-Public Use
  Company Number: KR-CELGENE-286-50794-14073467

PATIENT
  Age: 73 Year
  Sex: Male
  Weight: 60 kg

DRUGS (10)
  1. VIDAZA [Suspect]
     Active Substance: AZACITIDINE
     Route: 050
     Dates: start: 20130219, end: 20130226
  2. TIROPRAMIDE [Concomitant]
     Dosage: 4 GRAM
     Route: 041
     Dates: start: 20130524, end: 20130528
  3. TANAMIN [Concomitant]
     Indication: DIZZINESS
     Route: 048
     Dates: start: 20130617, end: 20130618
  4. TIROPRAMIDE [Concomitant]
     Indication: ABDOMINAL PAIN
     Route: 041
     Dates: start: 20130418, end: 20130418
  5. VANCOMYCIN [Concomitant]
     Active Substance: VANCOMYCIN
     Indication: ABDOMINAL PAIN
     Dosage: 5 MILLIGRAM
     Route: 041
     Dates: start: 20130423, end: 20130503
  6. VIDAZA [Suspect]
     Active Substance: AZACITIDINE
     Indication: MYELODYSPLASTIC SYNDROME
     Route: 065
     Dates: start: 20120717
  7. FLUCONAZOLE. [Concomitant]
     Active Substance: FLUCONAZOLE
     Indication: PROPHYLAXIS
     Route: 048
     Dates: start: 20130122, end: 20130205
  8. TRAMADOL [Concomitant]
     Active Substance: TRAMADOL
     Indication: ABDOMINAL PAIN
     Dosage: 360 MILLIGRAM
     Route: 041
     Dates: start: 20130418, end: 20130429
  9. TRAMADOL [Concomitant]
     Active Substance: TRAMADOL
     Dosage: 650 MILLIGRAM
     Route: 041
     Dates: start: 20130525, end: 20130527
  10. VIDAZA [Suspect]
     Active Substance: AZACITIDINE
     Route: 050
     Dates: start: 20130122, end: 20130128

REACTIONS (7)
  - Pyrexia [Recovered/Resolved]
  - Pneumonia [Fatal]
  - Pyrexia [Recovered/Resolved]
  - Pyrexia [Recovered/Resolved]
  - Pyrexia [Recovered/Resolved]
  - Ileus [Recovered/Resolved]
  - Ileus [Recovered/Resolved]

NARRATIVE: CASE EVENT DATE: 20130128
